FAERS Safety Report 7014259-8 (Version None)
Quarter: 2010Q3

REPORT INFORMATION
  Report Type: 
  Country: None (occurrence: None)
  Receive Date: 20100927
  Receipt Date: 20100915
  Transmission Date: 20110219
  Serious: Yes (Disabling)
  Sender: FDA-Public Use
  Company Number: AU-WYE-G06675810

PATIENT
  Sex: Female

DRUGS (1)
  1. PRISTIQ [Suspect]
     Indication: DEPRESSION
     Dosage: AT NIGHT
     Dates: start: 20100901

REACTIONS (5)
  - BALANCE DISORDER [None]
  - BEDRIDDEN [None]
  - DIZZINESS [None]
  - IMPAIRED WORK ABILITY [None]
  - MALAISE [None]
